FAERS Safety Report 7226384-7 (Version None)
Quarter: 2011Q1

REPORT INFORMATION
  Report Type: 
  Country: None (occurrence: None)
  Receive Date: 20110114
  Receipt Date: 20110111
  Transmission Date: 20110831
  Serious: Yes (Life-Threatening, Other)
  Sender: FDA-Public Use
  Company Number: PHHY2011US02197

PATIENT
  Sex: Female

DRUGS (7)
  1. RECLAST [Suspect]
     Indication: OSTEOPOROSIS
     Dosage: 5 MG, YEARLY
     Dates: start: 20100601
  2. VYTORIN [Concomitant]
     Dosage: 20 MG, UNK
  3. TYLENOL-500 [Concomitant]
  4. LISINOPRIL [Concomitant]
     Dosage: 20 MG, UNK
  5. VITAMIN D [Concomitant]
  6. CALCIUM [Concomitant]
  7. MELOX [Concomitant]

REACTIONS (6)
  - WEIGHT DECREASED [None]
  - PAIN [None]
  - EATING DISORDER [None]
  - JOINT SPRAIN [None]
  - FEELING ABNORMAL [None]
  - HYPERCHLORHYDRIA [None]
